FAERS Safety Report 4566729-X (Version None)
Quarter: 2005Q1

REPORT INFORMATION
  Report Type: 
  Country: None (occurrence: None)
  Receive Date: 20050201
  Receipt Date: 20011002
  Transmission Date: 20050727
  Serious: Yes (Other)
  Sender: FDA-Public Use
  Company Number: US-BRISTOL-MYERS SQUIBB COMPANY-11037025

PATIENT
  Age: 61 Year
  Sex: Female

DRUGS (16)
  1. STADOL [Suspect]
     Indication: MIGRAINE
     Dosage: DOSING: 10MG/ML
     Route: 045
  2. ACETAMINOPHEN W/ PROPOXYPHENE HCL [Concomitant]
  3. HYDROCODONE TARTRATE+ACETAMINOPHEN [Concomitant]
  4. ACETAMINOPHEN AND CODEINE PHOSPHATE [Concomitant]
  5. BUTALBITAL + ACETAMINOPHEN [Concomitant]
  6. PROPRANOLOL HYDROCHLORIDE [Concomitant]
  7. PAXIL [Concomitant]
  8. IMITREX [Concomitant]
  9. PROCARDIA XL [Concomitant]
  10. PRILOSEC [Concomitant]
  11. HYDROXYZINE [Concomitant]
  12. THIORIDAZINE HCL [Concomitant]
  13. NAPROXEN [Concomitant]
  14. ZOCOR [Concomitant]
  15. PREMPRO [Concomitant]
  16. METRONIDAZOLE HCL [Concomitant]

REACTIONS (2)
  - DEPENDENCE [None]
  - HEART RATE IRREGULAR [None]
